FAERS Safety Report 7041247-8 (Version None)
Quarter: 2010Q4

REPORT INFORMATION
  Report Type: 
  Country: None (occurrence: None)
  Receive Date: 20101013
  Receipt Date: 20101006
  Transmission Date: 20110411
  Serious: Yes (Hospitalization)
  Sender: FDA-Public Use
  Company Number: US-SANOFI-AVENTIS-2010SA061997

PATIENT
  Age: 75 Year
  Sex: Female

DRUGS (1)
  1. AMBIEN [Suspect]
     Route: 048

REACTIONS (6)
  - EYE INJURY [None]
  - FALL [None]
  - HEAD INJURY [None]
  - PNEUMOTHORAX [None]
  - RIB FRACTURE [None]
  - SOMNAMBULISM [None]
